FAERS Safety Report 8925588 (Version 1)
Quarter: 2012Q4

REPORT INFORMATION
  Report Type: 
  Country: US (occurrence: US)
  Receive Date: 20121126
  Receipt Date: 20121126
  Transmission Date: 20130627
  Serious: Yes (Hospitalization)
  Sender: FDA-Public Use
  Company Number: US-BAYER-2012-121908

PATIENT
  Age: 35 Year
  Sex: Female
  Weight: 71.7 kg

DRUGS (9)
  1. YAZ [Suspect]
     Indication: BIRTH CONTROL
  2. YASMIN [Suspect]
  3. NEXIUM [Concomitant]
     Indication: GERD
     Dosage: 40 mg, daily
  4. AMITRIPTYLINE [Concomitant]
     Indication: HEADACHE
     Dosage: 10 mg, daily
  5. ALEVE [Concomitant]
     Dosage: UNK, prn
  6. SUDAFED [Concomitant]
     Dosage: as needed
  7. WELLBID-D [Concomitant]
     Dosage: 1200 mg, UNK
  8. BIAXIN XL [Concomitant]
     Dosage: 500 mg, UNK
  9. BUTALBITAL, ACETAMINOPHEN + CAFFEINE [Concomitant]

REACTIONS (1)
  - Pulmonary embolism [None]
